FAERS Safety Report 18489733 (Version 1)
Quarter: 2020Q4

REPORT INFORMATION
  Report Type: Spontaneous
  Country: US (occurrence: US)
  Receive Date: 20201110
  Receipt Date: 20201110
  Transmission Date: 20210114
  Serious: Yes (Hospitalization)
  Sender: FDA-Public Use
  Company Number: None

PATIENT
  Sex: Female

DRUGS (6)
  1. TALZENNA [Suspect]
     Active Substance: TALAZOPARIB TOSYLATE
     Indication: BREAST CANCER FEMALE
     Route: 048
     Dates: start: 20200921
  2. CAPCETIBANE [Concomitant]
  3. PROCHLORPER [Concomitant]
  4. TAMOXIFEN [Concomitant]
     Active Substance: TAMOXIFEN
  5. OXYCODONE [Concomitant]
     Active Substance: OXYCODONE
  6. DEXAMETHASON [Concomitant]
     Active Substance: DEXAMETHASONE

REACTIONS (1)
  - Haemoglobin decreased [None]
